FAERS Safety Report 17392113 (Version 3)
Quarter: 2020Q3

REPORT INFORMATION
  Report Type: Report from Study
  Country: CN (occurrence: CN)
  Receive Date: 20200207
  Receipt Date: 20200911
  Transmission Date: 20201102
  Serious: Yes (Life-Threatening, Hospitalization)
  Sender: FDA-Public Use
  Company Number: CN-PFIZER INC-2020048986

PATIENT
  Age: 49 Year
  Sex: Male
  Weight: 63 kg

DRUGS (22)
  1. CYTARABINE. [Suspect]
     Active Substance: CYTARABINE
     Dosage: 5340 MG, UNK
     Route: 041
     Dates: start: 20191119, end: 20191124
  2. CYTARABINE. [Suspect]
     Active Substance: CYTARABINE
     Dosage: 5250 MG, UNK
     Route: 041
     Dates: start: 20200119, end: 20200123
  3. BLINDED GLASDEGIB [Suspect]
     Active Substance: GLASDEGIB
     Dosage: 100 MG, UNK
     Route: 048
     Dates: start: 20200201, end: 20200218
  4. SODIUM BICARBONATE TABLETS [Concomitant]
     Indication: INFECTION PROPHYLAXIS
     Dosage: 15 G, 1X/DAY (GARGLEL AS REPORTED)
     Dates: start: 20200118, end: 20200123
  5. CYTARABINE. [Suspect]
     Active Substance: CYTARABINE
     Dosage: 5340 MG, UNK
     Route: 041
     Dates: start: 20191220, end: 20191224
  6. DAUNORUBICIN [Suspect]
     Active Substance: DAUNORUBICIN
     Dosage: 104.4 MG, UNK
     Route: 041
     Dates: start: 20191012, end: 20191014
  7. 5% SODIUM BICARBONATE INJECTION [Concomitant]
     Indication: PROPHYLAXIS
     Dosage: 125 ML, 1X/DAY
     Route: 041
  8. TEPRENONE [Concomitant]
     Active Substance: TEPRENONE
     Indication: PROPHYLAXIS
     Dosage: 50 MG, 3X/DAY
     Route: 048
     Dates: start: 20200119, end: 20200124
  9. CYTARABINE. [Suspect]
     Active Substance: CYTARABINE
     Dosage: 174 MG, UNK
     Route: 041
     Dates: start: 20191012, end: 20191018
  10. TROPISETRON HYDROCHLORIDE [Concomitant]
     Active Substance: TROPISETRON HYDROCHLORIDE
     Indication: VOMITING
     Dosage: 5 MG, 1X/DAY
     Route: 042
     Dates: start: 20200118, end: 20200119
  11. COMPOUND SODIUM CHLORIDE [Concomitant]
     Indication: PROPHYLAXIS
     Dosage: 500 ML, 1X/DAY
     Route: 041
     Dates: start: 20200118, end: 20200123
  12. BLINDED GLASDEGIB [Suspect]
     Active Substance: GLASDEGIB
     Indication: ACUTE MYELOID LEUKAEMIA
     Dosage: 100 MG, UNK
     Route: 048
     Dates: start: 20190904, end: 20200131
  13. FUROSEMIDE. [Concomitant]
     Active Substance: FUROSEMIDE
     Indication: CEREBRAL HAEMORRHAGE
     Dosage: 20 MG, Q8H
     Route: 041
     Dates: start: 20200203, end: 20200212
  14. BLINDED PF?04449913 [Suspect]
     Active Substance: GLASDEGIB
     Indication: ACUTE MYELOID LEUKAEMIA
     Dosage: 100 MG, UNK
     Route: 048
     Dates: start: 20190904, end: 20200131
  15. BLINDED PF?04449913 [Suspect]
     Active Substance: GLASDEGIB
     Dosage: 100 MG, UNK
     Route: 048
     Dates: start: 20200201, end: 20200218
  16. CYTARABINE. [Concomitant]
     Active Substance: CYTARABINE
     Indication: ACUTE MYELOID LEUKAEMIA
     Dosage: 0.05 G, 1X/DAY
     Route: 037
     Dates: start: 20200119, end: 20200119
  17. CYTARABINE. [Suspect]
     Active Substance: CYTARABINE
     Indication: ACUTE MYELOID LEUKAEMIA
     Dosage: 178 MG, UNK
     Route: 041
     Dates: start: 20190904, end: 20190910
  18. PLACEBO [Suspect]
     Active Substance: UNSPECIFIED INGREDIENT
     Indication: ACUTE MYELOID LEUKAEMIA
     Dosage: 100 MG, UNK
     Route: 048
     Dates: start: 20190904, end: 20200131
  19. PLACEBO [Suspect]
     Active Substance: UNSPECIFIED INGREDIENT
     Dosage: 100 MG, UNK
     Route: 048
     Dates: start: 20200201, end: 20200218
  20. DAUNORUBICIN [Suspect]
     Active Substance: DAUNORUBICIN
     Indication: ACUTE MYELOID LEUKAEMIA
     Dosage: 106.8 MG, UNK
     Route: 041
     Dates: start: 20190904, end: 20190906
  21. OMEPRAZOLE ENTERIC?COATED [Concomitant]
     Indication: PROPHYLAXIS
     Dosage: 20 MG, 1X/DAY
     Route: 048
     Dates: start: 20200119, end: 20200124
  22. FUROSEMIDE. [Concomitant]
     Active Substance: FUROSEMIDE
     Indication: DIURETIC THERAPY
     Dosage: 20 MG, 1X/DAY
     Route: 042
     Dates: start: 20200118, end: 20200123

REACTIONS (1)
  - Cerebral haemorrhage [Recovered/Resolved with Sequelae]

NARRATIVE: CASE EVENT DATE: 20200201
